FAERS Safety Report 9232877 (Version 1)
Quarter: 2013Q2

REPORT INFORMATION
  Report Type: Spontaneous
  Country: MA (occurrence: None)
  Receive Date: 20130412
  Receipt Date: 20130412
  Transmission Date: 20140414
  Serious: Yes (Hospitalization, Other)
  Sender: FDA-Public Use
  Company Number: FK201301070

PATIENT
  Age: 43 Year
  Sex: Female

DRUGS (7)
  1. METHYLPREDNISOLONE [Suspect]
     Indication: IMMUNOSUPPRESSION
     Dates: start: 2011
  2. PREDNISOLONE (PREDNISOLONE) [Suspect]
     Indication: IMMUNOSUPPRESSION
     Dates: start: 2011
  3. CYCLOPHOSPHAMIDE (CYCLOPHOSPHAMIDE) [Concomitant]
  4. AMLODIPINE (AMLODIPINE) [Concomitant]
  5. VITAMIN D 3 [Concomitant]
  6. DUIRETICS [Concomitant]
  7. PROTON PUMP INHIBITORS (PROTON PUMP INHIBITORS) [Concomitant]

REACTIONS (4)
  - Scleroderma renal crisis [None]
  - Dialysis [None]
  - Normochromic normocytic anaemia [None]
  - Renal failure chronic [None]
